FAERS Safety Report 10957734 (Version 3)
Quarter: 2015Q3

REPORT INFORMATION
  Report Type: Spontaneous
  Country: US (occurrence: US)
  Receive Date: 20150326
  Receipt Date: 20150824
  Transmission Date: 20151125
  Serious: Yes (Hospitalization, Other)
  Sender: FDA-Public Use
  Company Number: US-PFIZER INC-2015104064

PATIENT
  Age: 64 Year
  Sex: Male
  Weight: 113 kg

DRUGS (19)
  1. VIAGRA [Suspect]
     Active Substance: SILDENAFIL CITRATE
     Dosage: 100MG (TAKE ONE TABLET BY MOUTH AS DIRECTED NOT MORE THAN 4 TABLETS/MONTH)
     Route: 048
     Dates: start: 20140523
  2. FINASTERIDE. [Concomitant]
     Active Substance: FINASTERIDE
     Dosage: 1 DF, DAILY
     Route: 048
     Dates: start: 20150626
  3. WARFARIN [Concomitant]
     Active Substance: WARFARIN
     Dosage: 5 MG, TWO TABLETS MONDAY, WEDNESDAY AND FRIDAY AND TAKE ONE AND ONE-HALF TABLET REMAINING DAYS
     Route: 048
     Dates: start: 2010
  4. ATORVASTATIN [Concomitant]
     Active Substance: ATORVASTATIN
     Indication: CARDIAC DISORDER
     Dosage: 80 MG, 1X/DAY (AT BEDTIME)
     Route: 048
     Dates: start: 201404
  5. VIAGRA [Suspect]
     Active Substance: SILDENAFIL CITRATE
     Dosage: 50 MG, 2X/WEEK ^HALF OF A 100MG TABLET MAYBE TWICE A WEEK^
     Route: 048
     Dates: start: 2005, end: 201406
  6. VIAGRA [Suspect]
     Active Substance: SILDENAFIL CITRATE
     Dosage: 100 MG, DAILY (Q DAY PRN)
     Route: 048
     Dates: start: 20120202, end: 201406
  7. SYNTHROID [Concomitant]
     Active Substance: LEVOTHYROXINE SODIUM
     Dosage: UNK
     Route: 048
     Dates: start: 2007
  8. MUSE [Concomitant]
     Active Substance: ALPROSTADIL
     Dosage: 50 ?G, AS NEEDED
     Route: 066
     Dates: start: 20150709
  9. MULTIVITAMINS W/MINERALS [Concomitant]
     Dosage: 1 DF, 1X/DAY IN THE MORNING
  10. SYNTHROID [Concomitant]
     Active Substance: LEVOTHYROXINE SODIUM
     Dosage: 0.112 MG, DAILY
     Route: 048
  11. ATORVASTATIN [Concomitant]
     Active Substance: ATORVASTATIN
     Indication: BLOOD CHOLESTEROL
  12. TAMSULOSIN HCL [Concomitant]
     Active Substance: TAMSULOSIN
     Dosage: 0.4 MG, DAILY
     Route: 048
     Dates: start: 20150626
  13. FISH OIL [Concomitant]
     Active Substance: FISH OIL
     Indication: EYE DISORDER
     Dosage: 1000MG (500MG DHA/EPA) 2X/DAY
     Route: 048
     Dates: start: 201201
  14. BABY ASPIRIN [Concomitant]
     Active Substance: ASPIRIN
     Dosage: 81 MG, 1X/DAY
     Route: 048
     Dates: start: 201404
  15. TRAMADOL HCL [Concomitant]
     Active Substance: TRAMADOL HYDROCHLORIDE
     Indication: PAIN
     Dosage: 100MG (2X50MG), 3X/DAY AS NEEDED
     Route: 048
     Dates: start: 20150318
  16. ALLOPURINOL. [Concomitant]
     Active Substance: ALLOPURINOL
     Indication: GOUT
     Dosage: 300 MG, 1X/DAY
     Route: 048
     Dates: start: 1990
  17. DOCUSATE [Concomitant]
     Active Substance: DOCUSATE
     Dosage: 100 MG, AS NEEDED
     Route: 048
  18. VIAGRA [Suspect]
     Active Substance: SILDENAFIL CITRATE
     Dosage: 50 MG, (50MG 1 OR 2 TIMES A WEEK)
     Route: 048
     Dates: start: 2005, end: 201407
  19. METOPROLOL [Concomitant]
     Active Substance: METOPROLOL
     Indication: CARDIAC DISORDER
     Dosage: 12.5 MG, 2X/DAY (TAKES HALF OF 25MG TAB)
     Route: 048
     Dates: start: 201404

REACTIONS (6)
  - Chest pain [Unknown]
  - Dyspnoea exertional [Recovered/Resolved]
  - Deafness unilateral [Not Recovered/Not Resolved]
  - Prostatomegaly [Not Recovered/Not Resolved]
  - Vertigo [Not Recovered/Not Resolved]
  - Coronary artery disease [Unknown]

NARRATIVE: CASE EVENT DATE: 2014
